FAERS Safety Report 4722918-2 (Version None)
Quarter: 2005Q3

REPORT INFORMATION
  Report Type: 
  Country: None (occurrence: None)
  Receive Date: 20050722
  Receipt Date: 20050622
  Transmission Date: 20060218
  Serious: Yes (Hospitalization, Other)
  Sender: FDA-Public Use
  Company Number: JP-ABBOTT-05P-087-0303925-00

PATIENT
  Sex: Male

DRUGS (4)
  1. CEFZON CAPSULES [Suspect]
     Indication: HYPERTHERMIA
     Route: 048
     Dates: start: 20050428, end: 20050428
  2. PARACETAMOL [Suspect]
     Indication: HYPERTHERMIA
     Route: 048
     Dates: start: 20050427, end: 20050428
  3. VALACYCLOVIR HCL [Suspect]
     Indication: DRUG USE FOR UNKNOWN INDICATION
     Route: 048
     Dates: start: 20050428, end: 20050428
  4. ACYCLOVIR [Concomitant]
     Indication: DRUG USE FOR UNKNOWN INDICATION
     Dosage: REGIMEN #1
     Route: 042

REACTIONS (4)
  - CONDITION AGGRAVATED [None]
  - PNEUMONIA [None]
  - RESPIRATORY DISORDER [None]
  - STEVENS-JOHNSON SYNDROME [None]
